FAERS Safety Report 6467636-8 (Version None)
Quarter: 2009Q4

REPORT INFORMATION
  Report Type: 
  Country: None (occurrence: None)
  Receive Date: 20091202
  Receipt Date: 20091130
  Transmission Date: 20100525
  Serious: Yes (Death, Hospitalization)
  Sender: FDA-Public Use
  Company Number: KR-SANOFI-AVENTIS-2009SA005451

PATIENT
  Age: 43 Year
  Sex: Female
  Weight: 69 kg

DRUGS (16)
  1. DOCETAXEL [Suspect]
     Indication: BREAST CANCER
     Dates: end: 20070319
  2. BLINDED THERAPY [Suspect]
     Indication: CANCER PAIN
     Route: 042
     Dates: start: 20090807, end: 20090807
  3. OXYCODONE HCL [Concomitant]
     Dates: start: 20060101
  4. OXYCODONE HCL [Concomitant]
     Dates: start: 20090803
  5. AMITRIPTYLINE [Concomitant]
     Dates: start: 20040101
  6. RANITIDINE [Concomitant]
     Dates: start: 20040101
  7. DIAZEPAM [Concomitant]
     Dates: start: 20040101
  8. FLURAZEPAM [Concomitant]
     Dates: start: 20040101
  9. PERPHENAZINE [Concomitant]
     Dates: start: 20040101
  10. LITHIUM CARBONATE [Concomitant]
     Dates: start: 20040101
  11. MAGNESIUM OXIDE [Concomitant]
     Dates: start: 20070101
  12. POLYCARBOPHIL CALCIUM [Concomitant]
     Dates: start: 20090401
  13. LACTULOSE [Concomitant]
     Dates: start: 20090401
  14. BENZYDAMINE [Concomitant]
     Dates: start: 20060101
  15. POVIDONE IODINE [Concomitant]
     Dates: start: 20060101
  16. LACTITOL [Concomitant]
     Dates: start: 20090808

REACTIONS (3)
  - DEATH [None]
  - DYSPNOEA [None]
  - PAIN [None]
